FAERS Safety Report 10535152 (Version 1)
Quarter: 2014Q4

REPORT INFORMATION
  Report Type: Spontaneous
  Country: US (occurrence: US)
  Receive Date: 20141022
  Receipt Date: 20141022
  Transmission Date: 20150529
  Serious: Yes (Other)
  Sender: FDA-Public Use
  Company Number: US-PFIZER INC-2014287300

PATIENT
  Age: 65 Year
  Sex: Male
  Weight: 80 kg

DRUGS (1)
  1. VIAGRA [Suspect]
     Active Substance: SILDENAFIL CITRATE
     Indication: ERECTILE DYSFUNCTION
     Dosage: UNK
     Dates: end: 2000

REACTIONS (6)
  - Intervertebral disc protrusion [Unknown]
  - Body height decreased [Unknown]
  - Blindness [Not Recovered/Not Resolved]
  - Spinal disorder [Unknown]
  - Optic nerve disorder [Unknown]
  - Corneal disorder [Unknown]
